FAERS Safety Report 11026103 (Version 1)
Quarter: 2015Q2

REPORT INFORMATION
  Report Type: Spontaneous
  Country: US (occurrence: None)
  Receive Date: 20150413
  Receipt Date: 20150413
  Transmission Date: 20150821
  Serious: Yes (Hospitalization)
  Sender: FDA-Public Use
  Company Number: None

PATIENT
  Age: 53 Year
  Sex: Male
  Weight: 126.7 kg

DRUGS (23)
  1. RANEXA [Concomitant]
     Active Substance: RANOLAZINE
  2. LOVENOX [Concomitant]
     Active Substance: ENOXAPARIN SODIUM
  3. METOPROLOL [Concomitant]
     Active Substance: METOPROLOL
  4. OXYCODONE [Concomitant]
     Active Substance: OXYCODONE
  5. PANTOPRAZOLE [Concomitant]
     Active Substance: PANTOPRAZOLE SODIUM
  6. TOPIRAMATE. [Concomitant]
     Active Substance: TOPIRAMATE
  7. FENTANYL. [Concomitant]
     Active Substance: FENTANYL
  8. ASPIRIN. [Concomitant]
     Active Substance: ASPIRIN
  9. FLOMAX [Concomitant]
     Active Substance: TAMSULOSIN HYDROCHLORIDE
  10. GLUCOPHAGE [Concomitant]
     Active Substance: METFORMIN HYDROCHLORIDE
  11. ZOFRAN [Concomitant]
     Active Substance: ONDANSETRON HYDROCHLORIDE
  12. IRON [Concomitant]
     Active Substance: IRON
  13. JANUVIA [Concomitant]
     Active Substance: SITAGLIPTIN PHOSPHATE
  14. BRENTUXIMAB VEDOTIN [Suspect]
     Active Substance: BRENTUXIMAB VEDOTIN
     Indication: DIFFUSE LARGE B-CELL LYMPHOMA
     Dosage: 1.2MG/KG ON DAY 1
     Dates: start: 20150319
  15. GABAPENTIN. [Concomitant]
     Active Substance: GABAPENTIN
  16. POTASSIUM CHLORIDE. [Concomitant]
     Active Substance: POTASSIUM CHLORIDE
  17. VENTOLINE [Concomitant]
     Active Substance: ALBUTEROL
  18. AMITRIPTYLINE [Concomitant]
     Active Substance: AMITRIPTYLINE
  19. FLUOXETINE [Concomitant]
     Active Substance: FLUOXETINE\FLUOXETINE HYDROCHLORIDE
  20. PLAVIX [Concomitant]
     Active Substance: CLOPIDOGREL BISULFATE
  21. LENALIDOMIDE [Suspect]
     Active Substance: LENALIDOMIDE
     Indication: DIFFUSE LARGE B-CELL LYMPHOMA
     Dosage: 25MG, DAYS 1-21
     Dates: start: 20150319, end: 20150408
  22. CHLORPHENIRAMINE [Concomitant]
     Active Substance: CHLORPHENIRAMINE
  23. DULERA [Concomitant]
     Active Substance: FORMOTEROL FUMARATE DIHYDRATE\MOMETASONE FUROATE

REACTIONS (1)
  - Deep vein thrombosis [None]

NARRATIVE: CASE EVENT DATE: 20150409
